FAERS Safety Report 11403841 (Version 1)
Quarter: 2015Q3

REPORT INFORMATION
  Report Type: Spontaneous
  Country: US (occurrence: US)
  Receive Date: 20150821
  Receipt Date: 20150821
  Transmission Date: 20151125
  Serious: Yes (Other)
  Sender: FDA-Public Use
  Company Number: US-ROCHE-1623857

PATIENT
  Age: 59 Year
  Sex: Female

DRUGS (1)
  1. ACTIVASE [Suspect]
     Active Substance: ALTEPLASE
     Indication: CEREBROVASCULAR ACCIDENT
     Route: 065
     Dates: start: 20150816

REACTIONS (6)
  - Visual impairment [Recovering/Resolving]
  - Intracranial pressure increased [Recovering/Resolving]
  - Brain midline shift [Unknown]
  - Cerebral haematoma [Recovering/Resolving]
  - Intraventricular haemorrhage [Recovering/Resolving]
  - Somnolence [Recovering/Resolving]

NARRATIVE: CASE EVENT DATE: 20150817
